FAERS Safety Report 20508503 (Version 2)
Quarter: 2022Q1

REPORT INFORMATION
  Report Type: Spontaneous
  Country: GB (occurrence: GB)
  Receive Date: 20220223
  Receipt Date: 20220228
  Transmission Date: 20220423
  Serious: Yes (Life-Threatening, Other)
  Sender: FDA-Public Use
  Company Number: None

PATIENT
  Age: 63 Year
  Sex: Female

DRUGS (8)
  1. OFIRMEV [Suspect]
     Active Substance: ACETAMINOPHEN
     Indication: Anaesthesia
     Dosage: 10-20 ML, SINGLE
     Route: 042
     Dates: start: 20211129, end: 20211129
  2. CHLORAPREP [Suspect]
     Active Substance: CHLORHEXIDINE GLUCONATE\ISOPROPYL ALCOHOL
     Indication: Anaesthesia
     Dosage: 20 PERCENT, 99 PERCENT
     Route: 065
     Dates: start: 20211129, end: 20211129
  3. FENTANYL CITRATE [Suspect]
     Active Substance: FENTANYL CITRATE
     Indication: Anaesthesia
     Dosage: 100 MICROGRAM, SINGLE
     Route: 042
     Dates: start: 20211129, end: 20211129
  4. PROPOFOL [Suspect]
     Active Substance: PROPOFOL
     Indication: Anaesthesia
     Dosage: 200 MILLIGRAM  (20MG/ML), SINGLE
     Route: 042
     Dates: start: 20211129, end: 20211129
  5. GENTAMICIN [Suspect]
     Active Substance: GENTAMICIN
     Indication: Anaesthesia
     Dosage: 160 MILLIGRAM, SINGLE
     Route: 042
     Dates: start: 20211129, end: 20211129
  6. LEVOBUPIVACAINE [Suspect]
     Active Substance: LEVOBUPIVACAINE
     Indication: Anaesthesia
     Dosage: 0.5 PERCENT, SINGLE
     Route: 058
     Dates: start: 20211129, end: 20211129
  7. TEICOPLANIN [Suspect]
     Active Substance: TEICOPLANIN
     Indication: Anaesthesia
     Dosage: 800 MILLIGRAM, SINGLE
     Route: 042
     Dates: start: 20211129, end: 20211129
  8. DEXAMETHASONE [Suspect]
     Active Substance: DEXAMETHASONE
     Indication: Anaesthesia
     Dosage: UNK
     Route: 042
     Dates: start: 20211129, end: 20211129

REACTIONS (2)
  - Anaphylactic reaction [Recovered/Resolved]
  - Off label use [Unknown]

NARRATIVE: CASE EVENT DATE: 20211129
